FAERS Safety Report 20635859 (Version 2)
Quarter: 2022Q2

REPORT INFORMATION
  Report Type: Spontaneous
  Country: GR (occurrence: GR)
  Receive Date: 20220325
  Receipt Date: 20220516
  Transmission Date: 20220721
  Serious: Yes (Other)
  Sender: FDA-Public Use
  Company Number: GR-NOVARTISPH-NVSC2022GR068105

PATIENT
  Age: 40 Year
  Sex: Male

DRUGS (2)
  1. TASIGNA [Suspect]
     Active Substance: NILOTINIB
     Indication: Product used for unknown indication
     Dosage: UNK
     Route: 065
  2. TASIGNA [Suspect]
     Active Substance: NILOTINIB
     Dosage: UNK (LOWER DOSE)
     Route: 065

REACTIONS (3)
  - Haematotoxicity [Recovered/Resolved]
  - White blood cell count decreased [Unknown]
  - Therapeutic response unexpected [Unknown]
